FAERS Safety Report 8780161 (Version 2)
Quarter: 2013Q1

REPORT INFORMATION
  Report Type: Spontaneous
  Country: DK (occurrence: None)
  Receive Date: 20120828
  Receipt Date: 20121119
  Transmission Date: 20140127
  Serious: Yes (Disabling)
  Sender: FDA-Public Use
  Company Number: 2012MA010470

PATIENT
  Age: 77 Year
  Sex: Female

DRUGS (1)
  1. MIRTAZAPINE [Suspect]
     Indication: DEPRESSION
     Dates: end: 20120620

REACTIONS (2)
  - Tardive dyskinesia [None]
  - Dysphagia [None]
